FAERS Safety Report 13422148 (Version 2)
Quarter: 2017Q2

REPORT INFORMATION
  Report Type: Spontaneous
  Country: PL (occurrence: PL)
  Receive Date: 20170410
  Receipt Date: 20170417
  Transmission Date: 20170830
  Serious: Yes (Other)
  Sender: FDA-Public Use
  Company Number: PL-ROCHE-1915665

PATIENT
  Age: 33 Year
  Sex: Male

DRUGS (4)
  1. CELLCEPT [Concomitant]
     Active Substance: MYCOPHENOLATE MOFETIL\MYCOPHENOLATE MOFETIL HYDROCHLORIDE
     Route: 048
     Dates: start: 20150228
  2. PROGRAF [Concomitant]
     Active Substance: TACROLIMUS\TACROLIMUS ANHYDROUS
     Route: 048
     Dates: start: 20150228
  3. ENCORTON [Concomitant]
     Active Substance: PREDNISONE
     Route: 048
     Dates: start: 20150228
  4. VALCYTE [Suspect]
     Active Substance: VALGANCICLOVIR HYDROCHLORIDE
     Indication: EPSTEIN-BARR VIRUS INFECTION
     Route: 048

REACTIONS (15)
  - Epstein-Barr virus test positive [Unknown]
  - Deep vein thrombosis [Unknown]
  - Splenomegaly [Unknown]
  - Headache [Unknown]
  - Nuclear magnetic resonance imaging abnormal [Unknown]
  - Venous thrombosis limb [Unknown]
  - Epstein-Barr virus antibody positive [Unknown]
  - Spinal compression fracture [Unknown]
  - Seminoma [Unknown]
  - Diarrhoea [Unknown]
  - Drug interaction [Unknown]
  - Off label use [Unknown]
  - Drug effect decreased [Unknown]
  - Central nervous system infection [Unknown]
  - Drug ineffective [Unknown]

NARRATIVE: CASE EVENT DATE: 201609
